FAERS Safety Report 5936602-0 (Version None)
Quarter: 2008Q4

REPORT INFORMATION
  Report Type: 
  Country: None (occurrence: None)
  Receive Date: 20081030
  Receipt Date: 20081020
  Transmission Date: 20090506
  Serious: Yes (Hospitalization, Other)
  Sender: FDA-Public Use
  Company Number: AT-ABBOTT-08P-062-0474154-00

PATIENT
  Sex: Female
  Weight: 82 kg

DRUGS (33)
  1. HUMIRA [Suspect]
     Indication: PSORIASIS
     Route: 058
     Dates: start: 20080311, end: 20080311
  2. HUMIRA [Suspect]
     Route: 058
     Dates: start: 20080318, end: 20080318
  3. HUMIRA [Suspect]
     Route: 058
     Dates: start: 20080401, end: 20080624
  4. HUMIRA [Suspect]
  5. DAIVOBET (BLINDED) [Suspect]
     Indication: PSORIASIS
     Route: 061
     Dates: start: 20080311
  6. ENALAPRIL MALEATE [Concomitant]
     Indication: HYPERTENSION
     Dates: start: 20050101
  7. DYAZIDE [Concomitant]
     Indication: HYPERTENSION
  8. EBASTINE [Concomitant]
     Indication: SEASONAL ALLERGY
  9. EBASTINE [Concomitant]
     Indication: HYPERSENSITIVITY
     Dates: start: 20080309, end: 20080309
  10. EBASTINE [Concomitant]
     Indication: PRURITUS
  11. EBASTINE [Concomitant]
     Indication: FOOD ALLERGY
  12. CITALOPRAM HYDROBROMIDE [Concomitant]
     Indication: DEPRESSION
  13. A.P.C. [Concomitant]
     Indication: HEADACHE
     Dates: start: 20080312, end: 20080312
  14. A.P.C. [Concomitant]
     Dates: start: 20080319, end: 20080320
  15. A.P.C. [Concomitant]
     Dates: start: 20080407, end: 20080407
  16. DICLOFENAC DIETHYLAMINE [Concomitant]
     Indication: BACK PAIN
     Dates: start: 20080326, end: 20080326
  17. DICLOFENAC DIETHYLAMINE [Concomitant]
     Dates: start: 20080402, end: 20080402
  18. DICLOFENAC DIETHYLAMINE [Concomitant]
     Dates: start: 20080414, end: 20080414
  19. DICLOFENAC DIETHYLAMINE [Concomitant]
     Dates: start: 20080419, end: 20080419
  20. PANTOPRAZOLE SODIUM [Concomitant]
     Indication: PROPHYLAXIS AGAINST GASTROINTESTINAL ULCER
     Dates: start: 20040402, end: 20040402
  21. PANTOPRAZOLE SODIUM [Concomitant]
     Dates: start: 20080414, end: 20080414
  22. PANTOPRAZOLE SODIUM [Concomitant]
     Dates: start: 20080419, end: 20080419
  23. CIPROFLOXACIN [Concomitant]
     Indication: CYSTITIS
     Dates: start: 20080403, end: 20080409
  24. OMEPRAZOLE [Concomitant]
     Indication: GASTRITIS
     Dosage: ^HEXAL^
     Dates: start: 20080422, end: 20080425
  25. SUCRALFATE [Concomitant]
     Indication: GASTRITIS
     Dates: start: 20080422, end: 20080425
  26. CLINDAMYCIN HCL [Concomitant]
     Indication: PERIODONTITIS
     Dates: start: 20080429, end: 20080503
  27. MEFENAMIC ACID [Concomitant]
     Indication: PERIODONTITIS
     Dates: start: 20080429, end: 20080501
  28. MEFENAMIC ACID [Concomitant]
     Dates: start: 20080516, end: 20080519
  29. MEFENAMIC ACID [Concomitant]
     Dates: start: 20080520, end: 20080522
  30. MEFENAMIC ACID [Concomitant]
     Dates: start: 20080523, end: 20080524
  31. CLINDAMYCIN HCL [Concomitant]
     Dates: start: 20080520, end: 20080524
  32. CLINDAMYCIN HCL [Concomitant]
     Indication: LYMPHADENOPATHY
     Dates: start: 20080609, end: 20080617
  33. CIPROFLOXACIN 1A [Concomitant]
     Indication: CYSTITIS
     Dates: start: 20080626, end: 20080703

REACTIONS (1)
  - OSTEOMYELITIS [None]
